FAERS Safety Report 11045936 (Version 9)
Quarter: 2015Q3

REPORT INFORMATION
  Report Type: Spontaneous
  Country: US (occurrence: US)
  Receive Date: 20150417
  Receipt Date: 20150831
  Transmission Date: 20151125
  Serious: Yes (Death, Hospitalization, Disabling, Other)
  Sender: FDA-Public Use
  Company Number: US-ALLERGAN-1506987US

PATIENT
  Age: 21 Year
  Sex: Female
  Weight: 24.36 kg

DRUGS (114)
  1. BOTOX [Suspect]
     Active Substance: ONABOTULINUMTOXINA
     Dosage: 50 UNITS, SINGLE
     Route: 030
     Dates: start: 20140206, end: 20140206
  2. BOTOX [Suspect]
     Active Substance: ONABOTULINUMTOXINA
     Dosage: 100 UNITS, UNK
     Route: 030
     Dates: start: 20111103, end: 20111103
  3. BOTOX [Suspect]
     Active Substance: ONABOTULINUMTOXINA
     Dosage: 50 UNITS, SINGLE
     Route: 030
     Dates: start: 20111103, end: 20111103
  4. BOTOX [Suspect]
     Active Substance: ONABOTULINUMTOXINA
     Dosage: 80 UNITS, SINGLE
     Route: 030
     Dates: start: 20100401, end: 20100401
  5. BOTOX [Suspect]
     Active Substance: ONABOTULINUMTOXINA
     Dosage: 100 UNITS, SINGLE
     Route: 030
     Dates: start: 20090507, end: 20090507
  6. PROFOL [Concomitant]
     Active Substance: PROPOFOL
     Dosage: UNK UNK, SINGLE
     Dates: start: 20130103, end: 20130103
  7. MOTRIN [Concomitant]
     Active Substance: IBUPROFEN
     Indication: PRODUCT USED FOR UNKNOWN INDICATION
     Dosage: Q 6H, PRN
     Dates: end: 20130624
  8. BOTOX [Suspect]
     Active Substance: ONABOTULINUMTOXINA
     Dosage: 50 UNITS, SINGLE
     Route: 030
     Dates: start: 20140206, end: 20140206
  9. BOTOX [Suspect]
     Active Substance: ONABOTULINUMTOXINA
     Dosage: 100 UNITS, SINGLE
     Route: 030
     Dates: start: 20140206, end: 20140206
  10. BOTOX [Suspect]
     Active Substance: ONABOTULINUMTOXINA
     Dosage: 100 UNITS, SINGLE
     Route: 030
     Dates: start: 20131031, end: 20131031
  11. BOTOX [Suspect]
     Active Substance: ONABOTULINUMTOXINA
     Dosage: 150 UNITS, SINGLE
     Route: 030
     Dates: start: 20130801, end: 20130801
  12. BOTOX [Suspect]
     Active Substance: ONABOTULINUMTOXINA
     Dosage: 100 UNITS, SINGLE
     Route: 030
     Dates: start: 20110718, end: 20110718
  13. BOTOX [Suspect]
     Active Substance: ONABOTULINUMTOXINA
     Dosage: 100 UNITS, SINGLE
     Route: 030
     Dates: start: 20110106, end: 20110106
  14. BOTOX [Suspect]
     Active Substance: ONABOTULINUMTOXINA
     Dosage: 200 UNITS, SINGLE
     Route: 030
     Dates: start: 20100107, end: 20100107
  15. BOTOX [Suspect]
     Active Substance: ONABOTULINUMTOXINA
     Dosage: 200 UNITS, SINGLE
     Route: 030
     Dates: start: 20090507, end: 20090507
  16. CENTRUM KIDS [Concomitant]
     Dosage: 15 MG, UNK
     Route: 048
  17. KLONOPIN [Concomitant]
     Active Substance: CLONAZEPAM
     Indication: PRODUCT USED FOR UNKNOWN INDICATION
     Dosage: 0.125 MG, BID
     Dates: start: 20061002, end: 20140801
  18. MIRALAX [Concomitant]
     Active Substance: POLYETHYLENE GLYCOL 3350
     Indication: CONSTIPATION
     Dosage: UNK UNK, QD
     Dates: start: 20130109
  19. PROFOL [Concomitant]
     Active Substance: PROPOFOL
     Dosage: UNK UNK, SINGLE
     Dates: start: 20100107, end: 20100107
  20. PROFOL [Concomitant]
     Active Substance: PROPOFOL
     Dosage: UNK UNK, SINGLE
     Dates: start: 20100701, end: 20100701
  21. PROFOL [Concomitant]
     Active Substance: PROPOFOL
     Dosage: UNK UNK, SINGLE
     Dates: start: 20120310, end: 20120310
  22. PROFOL [Concomitant]
     Active Substance: PROPOFOL
     Dosage: UNK UNK, SINGLE
     Dates: start: 20140206, end: 20140206
  23. PROFOL [Concomitant]
     Active Substance: PROPOFOL
     Dosage: UNK UNK, SINGLE
     Dates: start: 20140904, end: 20140904
  24. VERSED [Concomitant]
     Active Substance: MIDAZOLAM HYDROCHLORIDE
     Indication: GENERAL ANAESTHESIA
     Dosage: UNK UNK, SINGLE
     Dates: start: 20140904, end: 20140904
  25. LIORESAL [Concomitant]
     Active Substance: BACLOFEN
     Dosage: 15 MG, BID
  26. FERROUS SULFATE [Concomitant]
     Active Substance: FERROUS SULFATE\FERROUS SULFATE, DRIED
     Indication: PRODUCT USED FOR UNKNOWN INDICATION
     Dosage: UNK UNK, BID
  27. ADVIL [Concomitant]
     Active Substance: IBUPROFEN
     Indication: PRODUCT USED FOR UNKNOWN INDICATION
     Dosage: Q 6H, PRN
     Dates: end: 20130624
  28. BOTOX [Suspect]
     Active Substance: ONABOTULINUMTOXINA
     Dosage: 75 UNITS, SINGLE
     Dates: start: 20140904, end: 20140904
  29. BOTOX [Suspect]
     Active Substance: ONABOTULINUMTOXINA
     Dosage: 100 UNITS, SINGLE
     Route: 030
     Dates: start: 20140605, end: 20140605
  30. BOTOX [Suspect]
     Active Substance: ONABOTULINUMTOXINA
     Dosage: 150 UNITS, SINGLE
     Route: 030
     Dates: start: 20130801, end: 20130801
  31. BOTOX [Suspect]
     Active Substance: ONABOTULINUMTOXINA
     Dosage: 300 UNITS, SINGLE
     Route: 030
     Dates: start: 20120802, end: 20120802
  32. BOTOX [Suspect]
     Active Substance: ONABOTULINUMTOXINA
     Dosage: 100 UNITS, SINGLE
     Route: 030
     Dates: start: 20111103, end: 20111103
  33. BOTOX [Suspect]
     Active Substance: ONABOTULINUMTOXINA
     Dosage: 100 UNITS, SINGLE
     Route: 030
     Dates: start: 20110718, end: 20110718
  34. BOTOX [Suspect]
     Active Substance: ONABOTULINUMTOXINA
     Dosage: 100 UNITS, SINGLE
     Route: 030
     Dates: start: 20110106, end: 20110106
  35. CALCIUM + VIT.C [Concomitant]
     Active Substance: ASCORBIC ACID\CALCIUM CARBONATE
     Indication: PRODUCT USED FOR UNKNOWN INDICATION
     Dosage: UNK UNK, QHS
  36. MELATONIN [Concomitant]
     Active Substance: MELATONIN
     Indication: PRODUCT USED FOR UNKNOWN INDICATION
     Dosage: 2.5 ML, QHS
     Dates: start: 20061002
  37. CENTRUM KIDS [Concomitant]
     Indication: PRODUCT USED FOR UNKNOWN INDICATION
     Dosage: 15 ML, QHS
     Dates: start: 20061002, end: 20140709
  38. KLONOPIN [Concomitant]
     Active Substance: CLONAZEPAM
     Dosage: 1 MG, PRN
     Route: 048
  39. VALIUM [Concomitant]
     Active Substance: DIAZEPAM
     Indication: MUSCLE SPASMS
     Dosage: UNK UNK, PRN
     Dates: start: 20130109, end: 20130624
  40. ATIVAN [Concomitant]
     Active Substance: LORAZEPAM
     Indication: PRODUCT USED FOR UNKNOWN INDICATION
     Dosage: UNK UNK, PRN
  41. PROFOL [Concomitant]
     Active Substance: PROPOFOL
     Indication: GENERAL ANAESTHESIA
     Dosage: UNK UNK, SINGLE
     Dates: start: 20090507, end: 20090507
  42. PROFOL [Concomitant]
     Active Substance: PROPOFOL
     Dosage: UNK UNK, SINGLE
     Dates: start: 20100401, end: 20100401
  43. PHENOL. [Concomitant]
     Active Substance: PHENOL
     Dosage: 10 ML, SINGLE
     Dates: start: 20120725, end: 20120725
  44. TYLENOL [Concomitant]
     Active Substance: ACETAMINOPHEN
     Indication: PRODUCT USED FOR UNKNOWN INDICATION
     Dosage: 640 MG, EVERY 6 HOURS AS NEEDED
  45. SILVADENE [Concomitant]
     Active Substance: SILVER SULFADIAZINE
     Indication: RASH
     Dosage: UNK UNK, PRN
     Route: 061
     Dates: start: 20130430
  46. ENSURE [Concomitant]
     Active Substance: AMINO ACIDS\DEXTROSE\ELECTROLYTES NOS\SOYBEAN OIL\VITAMINS
     Indication: NUTRITIONAL SUPPLEMENTATION
     Dosage: UNK UNK, QD
  47. BOTOX [Suspect]
     Active Substance: ONABOTULINUMTOXINA
     Dosage: 50 UNITS, SINGLE
     Route: 030
     Dates: start: 20140904, end: 20140904
  48. BOTOX [Suspect]
     Active Substance: ONABOTULINUMTOXINA
     Dosage: 75 UNITS, SINGLE
     Dates: start: 20140904, end: 20140904
  49. BOTOX [Suspect]
     Active Substance: ONABOTULINUMTOXINA
     Dosage: 100 UNITS, SINGLE
     Route: 030
     Dates: start: 20140605, end: 20140605
  50. BOTOX [Suspect]
     Active Substance: ONABOTULINUMTOXINA
     Dosage: 300 UNITS, SINGLE
     Route: 030
     Dates: start: 20130103, end: 20130103
  51. BOTOX [Suspect]
     Active Substance: ONABOTULINUMTOXINA
     Dosage: 300 UNITS, SINGLE
     Route: 030
     Dates: start: 20120301, end: 20120301
  52. BOTOX [Suspect]
     Active Substance: ONABOTULINUMTOXINA
     Dosage: 50 UNITS, SINGLE
     Route: 030
     Dates: start: 20110718, end: 20110718
  53. BOTOX [Suspect]
     Active Substance: ONABOTULINUMTOXINA
     Dosage: 50 UNITS, SINGLE
     Route: 030
     Dates: start: 20110106, end: 20110106
  54. BOTOX [Suspect]
     Active Substance: ONABOTULINUMTOXINA
     Dosage: 150 UNITS, SINGLE
     Route: 030
     Dates: start: 20100701, end: 20100701
  55. BOTOX [Suspect]
     Active Substance: ONABOTULINUMTOXINA
     Dosage: 150 UNITS, SINGLE
     Route: 030
     Dates: start: 20090925, end: 20090925
  56. ZANTAC [Concomitant]
     Active Substance: RANITIDINE HYDROCHLORIDE
     Indication: PRODUCT USED FOR UNKNOWN INDICATION
     Dosage: 2.5 ML, BID
     Dates: start: 19970723
  57. PHENOL. [Concomitant]
     Active Substance: PHENOL
     Dosage: 3 ML, SINGLE
     Dates: start: 20120802, end: 20120802
  58. KEFLEX [Concomitant]
     Active Substance: CEPHALEXIN
     Indication: PRODUCT USED FOR UNKNOWN INDICATION
     Dosage: UNK UNK, BID
     Dates: start: 20110103, end: 20110111
  59. BOTOX [Suspect]
     Active Substance: ONABOTULINUMTOXINA
     Indication: CEREBRAL PALSY
     Dosage: 50 UNITS, SINGLE
     Route: 030
     Dates: start: 20140904, end: 20140904
  60. BOTOX [Suspect]
     Active Substance: ONABOTULINUMTOXINA
     Dosage: 100 UNITS, SINGLE
     Route: 030
     Dates: start: 20140206, end: 20140206
  61. BOTOX [Suspect]
     Active Substance: ONABOTULINUMTOXINA
     Dosage: 75 UNITS, SINGLE
     Route: 030
     Dates: start: 20110331, end: 20110331
  62. BOTOX [Suspect]
     Active Substance: ONABOTULINUMTOXINA
     Dosage: 70 UNITS, SINGLE
     Route: 030
     Dates: start: 20100401, end: 20100401
  63. BOTOX [Suspect]
     Active Substance: ONABOTULINUMTOXINA
     Dosage: 100 UNITS, SINGLE
     Route: 030
     Dates: start: 20100107, end: 20100107
  64. RISPERDAL [Concomitant]
     Active Substance: RISPERIDONE
     Indication: PRODUCT USED FOR UNKNOWN INDICATION
     Dosage: 0.125 ML, BID
     Dates: start: 20070827, end: 20140711
  65. BENADRYL ALLERGY [Concomitant]
     Active Substance: DIPHENHYDRAMINE HYDROCHLORIDE
     Indication: PRODUCT USED FOR UNKNOWN INDICATION
     Dosage: 7.5 ML, QHS
     Dates: start: 20070122
  66. BENADRYL ALLERGY [Concomitant]
     Active Substance: DIPHENHYDRAMINE HYDROCHLORIDE
     Dosage: UNK, Q6HR
     Route: 048
  67. MELATONIN [Concomitant]
     Active Substance: MELATONIN
     Dosage: 3 MG, QHS
     Route: 048
  68. CALCIUM CARBONATE/VITAMIN D3 [Concomitant]
     Indication: PRODUCT USED FOR UNKNOWN INDICATION
     Dosage: 7.5 ML, QHS
     Dates: start: 20080408
  69. CLARITIN [Concomitant]
     Active Substance: LORATADINE
     Indication: PRODUCT USED FOR UNKNOWN INDICATION
     Dosage: 10 ML, QD
     Dates: start: 20090417
  70. PROFOL [Concomitant]
     Active Substance: PROPOFOL
     Dosage: UNK UNK, SINGLE
     Dates: start: 20110331, end: 20110331
  71. PROFOL [Concomitant]
     Active Substance: PROPOFOL
     Dosage: UNK UNK, SINGLE
     Dates: start: 20120802, end: 20120802
  72. PROFOL [Concomitant]
     Active Substance: PROPOFOL
     Dosage: UNK UNK, SINGLE
     Dates: start: 20130801, end: 20130801
  73. SEVOFLURANE. [Concomitant]
     Active Substance: SEVOFLURANE
     Indication: GENERAL ANAESTHESIA
     Dosage: UNK UNK, SINGLE
     Dates: start: 20130103, end: 20130103
  74. PHENOL. [Concomitant]
     Active Substance: PHENOL
     Dosage: 2 ML, SINGLE
     Dates: start: 20140605, end: 20140605
  75. BOTOX [Suspect]
     Active Substance: ONABOTULINUMTOXINA
     Dosage: 100 UNITS, SINGLE
     Route: 030
     Dates: start: 20131031, end: 20131031
  76. BOTOX [Suspect]
     Active Substance: ONABOTULINUMTOXINA
     Dosage: 50 UNITS, SINGLE
     Route: 030
     Dates: start: 20111103, end: 20111103
  77. BOTOX [Suspect]
     Active Substance: ONABOTULINUMTOXINA
     Dosage: 75 UNITS, SINGLE
     Route: 030
     Dates: start: 20110331, end: 20110331
  78. BOTOX [Suspect]
     Active Substance: ONABOTULINUMTOXINA
     Dosage: 150 UNITS, SINGLE
     Route: 030
     Dates: start: 20100701, end: 20100701
  79. BOTOX [Suspect]
     Active Substance: ONABOTULINUMTOXINA
     Dosage: 80 UNITS, SINGLE
     Route: 030
     Dates: start: 20100401, end: 20100401
  80. BOTOX [Suspect]
     Active Substance: ONABOTULINUMTOXINA
     Dosage: 70 UNITS, SINGLE
     Route: 030
     Dates: start: 20100401, end: 20100401
  81. BOTOX [Suspect]
     Active Substance: ONABOTULINUMTOXINA
     Dosage: 280 UNITS, SINGLE
     Route: 030
     Dates: start: 20070301, end: 20070301
  82. ZANTAC [Concomitant]
     Active Substance: RANITIDINE HYDROCHLORIDE
     Dosage: 5 MG, BID
     Route: 048
  83. PROFOL [Concomitant]
     Active Substance: PROPOFOL
     Dosage: UNK UNK, SINGLE
     Dates: start: 20140605, end: 20140605
  84. MUPIROCIN. [Concomitant]
     Active Substance: MUPIROCIN
     Indication: ERYTHEMA
     Dosage: UNK
     Route: 061
     Dates: start: 20101217
  85. BOTOX [Suspect]
     Active Substance: ONABOTULINUMTOXINA
     Dosage: 50 UNITS, SINGLE
     Route: 030
     Dates: start: 20140904, end: 20140904
  86. BOTOX [Suspect]
     Active Substance: ONABOTULINUMTOXINA
     Dosage: 100 UNITS, SINGLE
     Route: 030
     Dates: start: 20131031, end: 20131031
  87. ZYRTEC [Concomitant]
     Active Substance: CETIRIZINE HYDROCHLORIDE
     Indication: PRODUCT USED FOR UNKNOWN INDICATION
     Dosage: 10 MG, QD
     Dates: start: 20061002
  88. ZOLOFT [Concomitant]
     Active Substance: SERTRALINE HYDROCHLORIDE
     Indication: PRODUCT USED FOR UNKNOWN INDICATION
     Dosage: 6 ML, QD
     Dates: start: 20061002, end: 20110210
  89. PEDIASURE [Concomitant]
     Active Substance: VITAMINS
     Indication: NUTRITIONAL SUPPLEMENTATION
     Dosage: 5 CANS BY MOUTH DAILY
     Dates: start: 20061002
  90. SERTRALINE HCL [Concomitant]
     Active Substance: SERTRALINE HYDROCHLORIDE
     Dosage: 6 MG, QHS
     Route: 048
     Dates: start: 20120928
  91. PROFOL [Concomitant]
     Active Substance: PROPOFOL
     Dosage: UNK UNK, SINGLE
     Dates: start: 20090507, end: 20090507
  92. PROFOL [Concomitant]
     Active Substance: PROPOFOL
     Dosage: UNK UNK, SINGLE
     Dates: start: 20110718, end: 20110718
  93. PHENOL. [Concomitant]
     Active Substance: PHENOL
     Indication: CEREBRAL PALSY
     Dosage: 4 ML, SINGLE
     Dates: start: 20120310, end: 20120310
  94. LIORESAL [Concomitant]
     Active Substance: BACLOFEN
     Indication: PRODUCT USED FOR UNKNOWN INDICATION
     Dosage: 20 MG, QHS
  95. MYCOSTATIN [Concomitant]
     Active Substance: NYSTATIN
     Indication: CELLULITIS
  96. ROXICODONE [Concomitant]
     Active Substance: OXYCODONE HYDROCHLORIDE
     Indication: PRODUCT USED FOR UNKNOWN INDICATION
     Dosage: 5 MG, PRN
  97. AMITRIPTYLINE [Concomitant]
     Active Substance: AMITRIPTYLINE
     Indication: PAIN
     Dosage: UNK
     Dates: start: 201407
  98. BOTOX [Suspect]
     Active Substance: ONABOTULINUMTOXINA
     Dosage: 50 UNITS, SINGLE
     Route: 030
     Dates: start: 20140605, end: 20140605
  99. BOTOX [Suspect]
     Active Substance: ONABOTULINUMTOXINA
     Dosage: 50 UNITS, SINGLE
     Route: 030
     Dates: start: 20140605, end: 20140605
  100. BOTOX [Suspect]
     Active Substance: ONABOTULINUMTOXINA
     Dosage: 50 UNITS, SINGLE
     Route: 030
     Dates: start: 20110718, end: 20110718
  101. BOTOX [Suspect]
     Active Substance: ONABOTULINUMTOXINA
     Dosage: 75 UNITS, SINGLE
     Route: 030
     Dates: start: 20110331, end: 20110331
  102. BOTOX [Suspect]
     Active Substance: ONABOTULINUMTOXINA
     Dosage: 75 UNITS, SINGLE
     Route: 030
     Dates: start: 20110331, end: 20110331
  103. BOTOX [Suspect]
     Active Substance: ONABOTULINUMTOXINA
     Dosage: 50 UNITS, SINGLE
     Route: 030
     Dates: start: 20110106, end: 20110106
  104. BOTOX [Suspect]
     Active Substance: ONABOTULINUMTOXINA
     Dosage: 150 UNITS, SINGLE
     Route: 030
     Dates: start: 20090925, end: 20090925
  105. CALCIUM CARBONATE/VITAMIN D3 [Concomitant]
     Dosage: 10 ML, UNK
     Route: 048
  106. CLARITIN [Concomitant]
     Active Substance: LORATADINE
     Dosage: 10 MG, QD
     Route: 048
  107. SERTRALINE HCL [Concomitant]
     Active Substance: SERTRALINE HYDROCHLORIDE
     Indication: PRODUCT USED FOR UNKNOWN INDICATION
     Dosage: 6 ML, QD
     Dates: end: 20140711
  108. PROFOL [Concomitant]
     Active Substance: PROPOFOL
     Dosage: UNK UNK, SINGLE
     Dates: start: 20110106, end: 20110106
  109. PROFOL [Concomitant]
     Active Substance: PROPOFOL
     Dosage: UNK UNK, SINGLE
     Dates: start: 20131031, end: 20131031
  110. PHENOL. [Concomitant]
     Active Substance: PHENOL
     Dosage: 10 ML, SINGLE
     Dates: start: 20140528, end: 20140528
  111. MYCOSTATIN [Concomitant]
     Active Substance: NYSTATIN
     Indication: RASH
     Dosage: UNK, PRN
     Route: 061
     Dates: start: 20130430
  112. SILVADENE [Concomitant]
     Active Substance: SILVER SULFADIAZINE
     Indication: CELLULITIS
  113. ZINC OXIDE. [Concomitant]
     Active Substance: ZINC OXIDE
     Indication: RASH
     Dosage: UNK
     Route: 061
     Dates: start: 20110110
  114. OMNICEF [Concomitant]
     Active Substance: CEFDINIR
     Indication: PRODUCT USED FOR UNKNOWN INDICATION
     Dosage: UNK UNK, BID
     Route: 061
     Dates: start: 20130430

REACTIONS (35)
  - Nutritional condition abnormal [Unknown]
  - Mobility decreased [Unknown]
  - Seizure [Unknown]
  - Scoliosis [Unknown]
  - Decubitus ulcer [Unknown]
  - Fatigue [Unknown]
  - Muscular weakness [Unknown]
  - Dysphagia [Unknown]
  - Breath sounds abnormal [Unknown]
  - Cellulitis [Unknown]
  - Increased viscosity of bronchial secretion [Unknown]
  - Muscle tightness [Unknown]
  - Night sweats [Unknown]
  - Atypical pneumonia [Fatal]
  - Malnutrition [Unknown]
  - Musculoskeletal disorder [Unknown]
  - Weight fluctuation [Unknown]
  - Vomiting [Unknown]
  - Hyperlipidaemia [Unknown]
  - Poor quality sleep [Unknown]
  - Altered state of consciousness [Unknown]
  - Pneumonia aspiration [Unknown]
  - Off label use [Unknown]
  - Choking [Unknown]
  - Retching [Unknown]
  - Irritability [Unknown]
  - Botulism [Fatal]
  - Hypopnoea [Fatal]
  - Overdose [Fatal]
  - Dysphagia [Fatal]
  - Monoparesis [Unknown]
  - Eye movement disorder [Unknown]
  - Anxiety [Unknown]
  - Pain [Unknown]
  - Osteopenia [Unknown]

NARRATIVE: CASE EVENT DATE: 2007
